FAERS Safety Report 7304644-9 (Version None)
Quarter: 2011Q1

REPORT INFORMATION
  Report Type: 
  Country: None (occurrence: None)
  Receive Date: 20110222
  Receipt Date: 20110209
  Transmission Date: 20110831
  Serious: Yes (Life-Threatening, Hospitalization, Other)
  Sender: FDA-Public Use
  Company Number: DE-PAR PHARMACEUTICAL, INC-2010SCPR002359

PATIENT
  Age: 17 Week
  Sex: Female

DRUGS (2)
  1. PROPRANOLOL HCL [Suspect]
     Dosage: 2 MG/KG, PER DAY, DIVIDED INTO 3 DOSES ON DAY 2
     Route: 048
  2. PROPRANOLOL HCL [Suspect]
     Indication: HAEMANGIOMA
     Dosage: 1 MG/KG, PER DAY, DIVIDED INTO 3 DOSES
     Route: 048

REACTIONS (4)
  - STAPHYLOCOCCAL INFECTION [None]
  - HYPOTENSION [None]
  - BLOOD LACTATE DEHYDROGENASE INCREASED [None]
  - HYPERKALAEMIA [None]
